FAERS Safety Report 6123866-6 (Version None)
Quarter: 2009Q1

REPORT INFORMATION
  Report Type: 
  Country: None (occurrence: None)
  Receive Date: 20090319
  Receipt Date: 20090313
  Transmission Date: 20090719
  Serious: Yes (Hospitalization)
  Sender: FDA-Public Use
  Company Number: US-BIOGENIDEC-2008BI006796

PATIENT
  Age: 63 Year
  Sex: Female

DRUGS (3)
  1. TYSABRI [Suspect]
     Indication: MULTIPLE SCLEROSIS
     Route: 042
     Dates: start: 20060928
  2. TYSABRI [Suspect]
     Route: 042
     Dates: start: 20081029, end: 20080101
  3. TYSABRI [Suspect]
     Route: 042
     Dates: start: 20090201

REACTIONS (2)
  - INFECTION [None]
  - STAPHYLOCOCCAL INFECTION [None]
